FAERS Safety Report 7037126-2 (Version None)
Quarter: 2010Q4

REPORT INFORMATION
  Report Type: 
  Country: None (occurrence: None)
  Receive Date: 20101011
  Receipt Date: 20100927
  Transmission Date: 20110411
  Serious: Yes (Death, Hospitalization)
  Sender: FDA-Public Use
  Company Number: ES-ELI_LILLY_AND_COMPANY-ES201009007373

PATIENT
  Sex: Female

DRUGS (4)
  1. FORTEO [Suspect]
     Indication: OSTEOPOROSIS
     Dosage: 20 UG, DAILY (1/D)
     Route: 058
     Dates: start: 20100405, end: 20100829
  2. SEGURIL [Concomitant]
     Dosage: UNK, DAILY (1/D)
     Route: 048
     Dates: end: 20100831
  3. LEXATIN [Concomitant]
     Indication: INSOMNIA
     Dosage: UNK, DAILY (1/D)
     Route: 048
     Dates: end: 20100831
  4. PLAVIX [Concomitant]
     Indication: CEREBRAL THROMBOSIS
     Dosage: UNK, DAILY (1/D)
     Route: 048
     Dates: end: 20100831

REACTIONS (3)
  - APHASIA [None]
  - LUNG INFECTION [None]
  - MALAISE [None]
